FAERS Safety Report 9010922 (Version 4)
Quarter: 2013Q2

REPORT INFORMATION
  Report Type: Report from Study
  Country: US (occurrence: US)
  Receive Date: 20130111
  Receipt Date: 20130508
  Transmission Date: 20140414
  Serious: Yes (Hospitalization, Other)
  Sender: FDA-Public Use
  Company Number: PHEH2012US025476

PATIENT
  Age: 23 Year
  Sex: Female

DRUGS (4)
  1. GILENYA [Suspect]
     Indication: MULTIPLE SCLEROSIS
     Dosage: 0.5 MG, QD
     Route: 048
     Dates: start: 20111207
  2. GILENYA [Suspect]
  3. IMITREX [Suspect]
  4. VICODIN [Suspect]

REACTIONS (9)
  - Migraine [Unknown]
  - Hemiparesis [Not Recovered/Not Resolved]
  - Central nervous system lesion [Unknown]
  - Vitamin D decreased [Unknown]
  - Stress [Unknown]
  - Chest pain [Unknown]
  - Constipation [Unknown]
  - Pain [Not Recovered/Not Resolved]
  - Headache [Not Recovered/Not Resolved]
